FAERS Safety Report 4607510-2 (Version None)
Quarter: 2005Q1

REPORT INFORMATION
  Report Type: 
  Country: None (occurrence: None)
  Receive Date: 20050310
  Receipt Date: 20050302
  Transmission Date: 20050727
  Serious: Yes (Other)
  Sender: FDA-Public Use
  Company Number: 2005S1000080

PATIENT
  Age: 35 Year
  Sex: Female

DRUGS (1)
  1. ACITRETIN (ACITRETIN) (10 MG) [Suspect]
     Indication: PSORIASIS
     Dosage: 20 MG; QD; PO
     Route: 048
     Dates: start: 20050211, end: 20050213

REACTIONS (1)
  - DRUG EXPOSURE DURING PREGNANCY [None]
